FAERS Safety Report 21167009 (Version 2)
Quarter: 2022Q3

REPORT INFORMATION
  Report Type: Spontaneous
  Country: US (occurrence: US)
  Receive Date: 20220803
  Receipt Date: 20220929
  Transmission Date: 20221027
  Serious: No
  Sender: FDA-Public Use
  Company Number: US-PFIZER INC-202201025918

PATIENT
  Age: 71 Year
  Sex: Female
  Weight: 83.91 kg

DRUGS (44)
  1. PAXLOVID [Suspect]
     Active Substance: NIRMATRELVIR\RITONAVIR
     Indication: COVID-19 treatment
     Dosage: 2X/DAY(150 MG-100 MG ORAL TABLET, 1 DOSE BID X 5 DAYS )
     Route: 048
     Dates: start: 20220726, end: 20220730
  2. LIPITOR [Concomitant]
     Active Substance: ATORVASTATIN CALCIUM
     Dosage: UNK
  3. CLONAZEPAM [Concomitant]
     Active Substance: CLONAZEPAM
     Dosage: 0.5 MG, DAILY
     Route: 048
  4. DILTIAZEM [Concomitant]
     Active Substance: DILTIAZEM
     Dosage: 240 MG, 1X/DAY
     Route: 048
  5. DULOXETINE [Concomitant]
     Active Substance: DULOXETINE
     Dosage: 60 MILLIGRAMS
  6. FLUTICASONE [Concomitant]
     Active Substance: FLUTICASONE
     Dosage: 50 UG(INH NASAL SPRAY)
  7. FOLIC ACID [Concomitant]
     Active Substance: FOLIC ACID
     Dosage: 2400 UG, DAILY
  8. FOLIC ACID [Concomitant]
     Active Substance: FOLIC ACID
     Dosage: 0.8 MG(0.8 MG ORAL TABLET 3 TABS QAM)
     Route: 048
  9. HYDROCHLOROTHIAZIDE [Concomitant]
     Active Substance: HYDROCHLOROTHIAZIDE
     Dosage: 25 MG, 1X/DAY
     Route: 048
  10. IMURAN [Concomitant]
     Active Substance: AZATHIOPRINE
     Dosage: 100 MG, DAILY(, 2 TABLETS BY MOUTH EACH MORNING)
     Route: 048
  11. LOSARTAN [Concomitant]
     Active Substance: LOSARTAN
     Dosage: 1X/DAY
     Route: 048
  12. MIRALAX [Concomitant]
     Active Substance: POLYETHYLENE GLYCOL 3350
     Dosage: UNK, 1X/DAY
     Route: 048
  13. PREDNISONE [Concomitant]
     Active Substance: PREDNISONE
     Dosage: 2.5 MILLIGRAMS
  14. SYMBICORT [Concomitant]
     Active Substance: BUDESONIDE\FORMOTEROL FUMARATE DIHYDRATE
     Dosage: UNK, DAILY(160 MCG-4.5 MCG/INH INHALATION AEROSOL, 2 INHALATIONS EVERY MORNING)
  15. TYLENOL [Concomitant]
     Active Substance: ACETAMINOPHEN
     Dosage: 650 MILLIGRAMS, I TAKE TWO OF THOSE
  16. VITAMIN D3 [Concomitant]
     Active Substance: CHOLECALCIFEROL
     Dosage: 50 UG, 1X/DAY(2000 IU)
     Route: 048
  17. VITAMIN B12 [Concomitant]
     Active Substance: CYANOCOBALAMIN
     Dosage: 1000 UG, 1X/DAY(EVERY EVENING)
     Route: 048
  18. XARELTO [Concomitant]
     Active Substance: RIVAROXABAN
     Dosage: 20 MG, 1X/DAY(EVERY EVENING)
     Route: 048
  19. ZYRTEC [Concomitant]
     Active Substance: CETIRIZINE HYDROCHLORIDE
     Dosage: 10 MG, 1X/DAY
     Route: 048
  20. TRAMADOL [Concomitant]
     Active Substance: TRAMADOL
     Dosage: 50 MG, 1X/DAY(EVERY EVENING)
     Route: 048
  21. METFORMIN [Concomitant]
     Active Substance: METFORMIN HYDROCHLORIDE
     Dosage: 500 MG, 2X/DAY(ONE CAP FULL EVERY MORNING/TAKE 2 PILLS BY MOUTH BID X 3MONTHS(90DAYS))
     Route: 048
  22. MONTELUKAST [Concomitant]
     Active Substance: MONTELUKAST SODIUM
     Dosage: 10 MG, 1X/DAY
     Route: 048
  23. PRILOSEC [Concomitant]
     Active Substance: OMEPRAZOLE MAGNESIUM
     Dosage: 20 MILLIGRAMS
  24. PRILOSEC [Concomitant]
     Active Substance: OMEPRAZOLE MAGNESIUM
     Dosage: 40 MG, DAILY
     Route: 048
  25. NOVOLIN 70/30 [Concomitant]
     Active Substance: INSULIN HUMAN
     Dosage: (INJECT 64 UNITS QAM AND 34UNITS QHS)
     Route: 058
  26. NOVOLIN 70/30 [Concomitant]
     Active Substance: INSULIN HUMAN
     Dosage: 34 UNIT EVERY NIGHT
  27. ALBUTEROL [Concomitant]
     Active Substance: ALBUTEROL
     Indication: Cough
     Dosage: UNK, AS NEEDED(TREATMENT EVERY 4-6 AS NEEDED )
  28. ALBUTEROL [Concomitant]
     Active Substance: ALBUTEROL
     Indication: Wheezing
  29. IPRATROPIUM [Concomitant]
     Active Substance: IPRATROPIUM
     Dosage: UNK, DAILY
  30. POTASSIUM BICARBONATE/SODIUM BICARBONATE [Concomitant]
     Dosage: UNK
     Route: 048
  31. EFFERVESCENT [Concomitant]
     Dosage: 198 MG (EFFERVESCENT, 99MG 2 PO QHS)
     Route: 048
  32. PROACTAZYME [Concomitant]
     Dosage: 1 DF, 2X/DAY
     Route: 048
  33. FISH OIL [Concomitant]
     Active Substance: FISH OIL
     Dosage: 2400 MG, 2X/DAY
     Route: 048
  34. MAGNESIUM CITRATE [Concomitant]
     Active Substance: MAGNESIUM CITRATE
     Dosage: 800 MG, 1X/DAY(400 MG, 2TAB QHS)
  35. CHONDROITIN [Concomitant]
     Active Substance: CHONDROITIN
     Dosage: 400 MG, 2X/DAY
     Route: 048
  36. GLUCOSAMINE [Concomitant]
     Active Substance: GLUCOSAMINE
     Dosage: 500 MG, 2X/DAY
     Route: 048
  37. DIMETHYL SULFONE [Concomitant]
     Active Substance: DIMETHYL SULFONE
     Dosage: 250 MG, 2X/DAY
     Route: 048
  38. CYMBALTA [Concomitant]
     Active Substance: DULOXETINE HYDROCHLORIDE
     Dosage: 60 MG, 1X/DAY
     Route: 048
  39. LIDODERM [Concomitant]
     Active Substance: LIDOCAINE
     Dosage: UNK(LIDODERM EXTERNAL PATCH, 4 PER DAY)
  40. ALBUTEROL\IPRATROPIUM [Concomitant]
     Active Substance: ALBUTEROL\IPRATROPIUM
     Dosage: UNK, 3X/DAY(0.5 MG-2 MG/3 ML INHALATION SOLUTION, IN NEBULIZER 3 TIMES A DAY)
  41. ATORVASTATIN [Concomitant]
     Active Substance: ATORVASTATIN
     Dosage: 20 MG, DAILY
     Route: 048
  42. OMEPRAZOLE [Concomitant]
     Active Substance: OMEPRAZOLE
     Dosage: 40 MG, 1X/DAY
     Route: 048
  43. HERBALS\TURMERIC [Concomitant]
     Active Substance: HERBALS\TURMERIC
     Dosage: 900 MG, 1X/DAY
  44. INSULIN NOS [Concomitant]
     Active Substance: INSULIN NOS
     Dosage: SYRINGE/NEEDLE, INJECTING TWICE DAILY

REACTIONS (4)
  - Insomnia [Recovered/Resolved]
  - Psychomotor hyperactivity [Unknown]
  - Fatigue [Unknown]
  - Dyspnoea [Unknown]

NARRATIVE: CASE EVENT DATE: 20220730
